FAERS Safety Report 17741023 (Version 1)
Quarter: 2020Q2

REPORT INFORMATION
  Report Type: Report from Study
  Country: US (occurrence: US)
  Receive Date: 20200504
  Receipt Date: 20200504
  Transmission Date: 20200714
  Serious: No
  Sender: FDA-Public Use
  Company Number: NVSC2020US118595

PATIENT
  Sex: Male

DRUGS (2)
  1. BD [Concomitant]
     Indication: PRODUCT USED FOR UNKNOWN INDICATION
     Dosage: UNK
     Route: 065
  2. RYDAPT [Suspect]
     Active Substance: MIDOSTAURIN
     Indication: ACUTE MYELOID LEUKAEMIA
     Dosage: 2 DF, Q12H (FOR 14 DAYS FOLLOWED BY 14 DAYS REST)
     Route: 048

REACTIONS (1)
  - Headache [Not Recovered/Not Resolved]
